FAERS Safety Report 24762382 (Version 1)
Quarter: 2024Q4

REPORT INFORMATION
  Report Type: Spontaneous
  Country: AU (occurrence: AU)
  Receive Date: 20241221
  Receipt Date: 20241221
  Transmission Date: 20250114
  Serious: Yes (Hospitalization, Other)
  Sender: MERCK
  Company Number: AU-009507513-2412AUS007479

PATIENT
  Age: 85 Year
  Sex: Male

DRUGS (1)
  1. BCG LIVE [Suspect]
     Active Substance: BACILLUS CALMETTE-GUERIN SUBSTRAIN TICE LIVE ANTIGEN
     Indication: Bladder transitional cell carcinoma
     Dosage: UNK
     Route: 043
     Dates: start: 202212, end: 202212

REACTIONS (4)
  - Disseminated Bacillus Calmette-Guerin infection [Recovering/Resolving]
  - Pancytopenia [Recovered/Resolved]
  - Pyrexia [Unknown]
  - Fatigue [Not Recovered/Not Resolved]

NARRATIVE: CASE EVENT DATE: 20230101
